FAERS Safety Report 8176457-X (Version None)
Quarter: 2012Q1

REPORT INFORMATION
  Report Type: 
  Country: None (occurrence: None)
  Receive Date: 20120228
  Receipt Date: 20120221
  Transmission Date: 20120608
  Serious: Yes (Hospitalization)
  Sender: FDA-Public Use
  Company Number: WAES 1202USA03041

PATIENT
  Age: 59 Year
  Sex: Female

DRUGS (3)
  1. HYZAAR [Suspect]
     Dosage: PO
     Route: 048
  2. IXEMPRA UNK [Suspect]
     Indication: BREAST CANCER
     Dosage: IV
     Route: 042
     Dates: start: 20100716
  3. BEVACIZUMAB UNK [Suspect]
     Indication: BREAST CANCER
     Dosage: IV
     Route: 042
     Dates: start: 20100716

REACTIONS (13)
  - PNEUMONIA [None]
  - ASTHENIA [None]
  - HYPONATRAEMIA [None]
  - COUGH [None]
  - OEDEMA PERIPHERAL [None]
  - DYSPHONIA [None]
  - LUNG INFECTION [None]
  - STAPHYLOCOCCAL INFECTION [None]
  - SPUTUM CULTURE POSITIVE [None]
  - MUSCULOSKELETAL CHEST PAIN [None]
  - FALL [None]
  - BRONCHITIS [None]
  - HYPOALBUMINAEMIA [None]
